FAERS Safety Report 7014891-1 (Version None)
Quarter: 2010Q3

REPORT INFORMATION
  Report Type: 
  Country: None (occurrence: None)
  Receive Date: 20100927
  Receipt Date: 20090918
  Transmission Date: 20110219
  Serious: No
  Sender: FDA-Public Use
  Company Number: US-ASTRAZENECA-2009SE14083

PATIENT
  Age: 74 Year
  Sex: Female
  Weight: 74.4 kg

DRUGS (3)
  1. ARIMIDEX [Suspect]
     Route: 048
     Dates: start: 20060901
  2. ARIMIDEX [Suspect]
     Route: 048
  3. ZOLPIDEM [Concomitant]
     Indication: INSOMNIA

REACTIONS (4)
  - ARTHRITIS [None]
  - INSOMNIA [None]
  - INTENTIONAL DRUG MISUSE [None]
  - MUSCLE MASS [None]
